FAERS Safety Report 8355921-4 (Version None)
Quarter: 2012Q2

REPORT INFORMATION
  Report Type: 
  Country: None (occurrence: None)
  Receive Date: 20120511
  Receipt Date: 20120511
  Transmission Date: 20120825
  Serious: Yes (Disabling)
  Sender: FDA-Public Use
  Company Number: None

PATIENT
  Age: 36 Year
  Sex: Male
  Weight: 90.7194 kg

DRUGS (2)
  1. CIPRO [Suspect]
     Indication: PROSTATE INFECTION
     Dosage: 1 TABLET 2 TIMES A DAY DAILY FOR MONTHS PO
     Route: 048
     Dates: start: 19970617, end: 20020613
  2. LEVAQUIN [Suspect]
     Indication: PROSTATE INFECTION
     Dosage: 1 TABLET 4 TIMES A DAY DAILY FOR 2 WEEKS PO
     Route: 048
     Dates: start: 20000822, end: 20000910

REACTIONS (5)
  - MUSCULAR WEAKNESS [None]
  - TENDON PAIN [None]
  - TENDON RUPTURE [None]
  - PAIN [None]
  - NEURALGIA [None]
